FAERS Safety Report 19599616 (Version 1)
Quarter: 2021Q3

REPORT INFORMATION
  Report Type: Spontaneous
  Country: US (occurrence: US)
  Receive Date: 20210722
  Receipt Date: 20210722
  Transmission Date: 20211014
  Serious: Yes (Hospitalization, Other)
  Sender: FDA-Public Use
  Company Number: US-OTSUKA-2018_028923

PATIENT
  Sex: Male

DRUGS (4)
  1. ABILIFY [Suspect]
     Active Substance: ARIPIPRAZOLE
     Indication: SCHIZOPHRENIA
     Dosage: 3.25 MG, QD
     Route: 065
     Dates: start: 20141113
  2. ABILIFY [Suspect]
     Active Substance: ARIPIPRAZOLE
     Indication: ANXIETY
     Dosage: 10 MG, QD
     Route: 065
     Dates: end: 20180507
  3. ABILIFY [Suspect]
     Active Substance: ARIPIPRAZOLE
     Indication: PSYCHOTIC DISORDER
  4. ABILIFY [Suspect]
     Active Substance: ARIPIPRAZOLE
     Indication: BIPOLAR DISORDER
     Dosage: 5 MG, QD
     Route: 065

REACTIONS (15)
  - Loss of employment [Unknown]
  - Feeling guilty [Unknown]
  - Obsessive-compulsive disorder [Unknown]
  - Pain [Unknown]
  - Suicide attempt [Unknown]
  - Personal relationship issue [Unknown]
  - Depression [Unknown]
  - Anxiety [Unknown]
  - Gambling disorder [Recovered/Resolved]
  - Condition aggravated [Recovered/Resolved]
  - Product use in unapproved indication [Unknown]
  - Psychotic disorder [Unknown]
  - Economic problem [Unknown]
  - Emotional distress [Unknown]
  - Compulsive shopping [Recovered/Resolved]

NARRATIVE: CASE EVENT DATE: 20141113
